FAERS Safety Report 6330336-9 (Version None)
Quarter: 2009Q3

REPORT INFORMATION
  Report Type: 
  Country: None (occurrence: None)
  Receive Date: 20090826
  Receipt Date: 20090826
  Transmission Date: 20100115
  Serious: No
  Sender: FDA-Public Use
  Company Number: None

PATIENT
  Sex: Female
  Weight: 60.782 kg

DRUGS (2)
  1. CARVEDILOL [Suspect]
     Indication: CARDIOMYOPATHY
     Dosage: 6.25 MG TWICE DAILY P.O.
     Route: 048
     Dates: start: 20090501
  2. CARVEDILOL [Suspect]
     Indication: CARDIOMYOPATHY
     Dosage: 6.25 MG TWICE DAILY P.O.
     Route: 048
     Dates: start: 20090602

REACTIONS (2)
  - PRODUCT SUBSTITUTION ISSUE [None]
  - PRURITUS GENERALISED [None]
